FAERS Safety Report 8469826-1 (Version None)
Quarter: 2012Q2

REPORT INFORMATION
  Report Type: 
  Country: None (occurrence: None)
  Receive Date: 20120626
  Receipt Date: 20120612
  Transmission Date: 20120825
  Serious: Yes (Other)
  Sender: FDA-Public Use
  Company Number: CHPA2012US012741

PATIENT
  Age: 79 Year
  Sex: Male

DRUGS (1)
  1. EXCEDRIN TENSION HEADACHE CAPLETS [Suspect]
     Indication: ARTHRITIS
     Dosage: 1 TO 2 DF, PRN
     Route: 048

REACTIONS (6)
  - THERAPEUTIC RESPONSE UNEXPECTED [None]
  - PROSTATOMEGALY [None]
  - FEELING ABNORMAL [None]
  - OFF LABEL USE [None]
  - PROSTATIC SPECIFIC ANTIGEN INCREASED [None]
  - UNDERDOSE [None]
